FAERS Safety Report 5607099-5 (Version None)
Quarter: 2008Q1

REPORT INFORMATION
  Report Type: 
  Country: None (occurrence: None)
  Receive Date: 20080129
  Receipt Date: 20080122
  Transmission Date: 20080703
  Serious: Yes (Other)
  Sender: FDA-Public Use
  Company Number: AT-PFIZER INC-2007100268

PATIENT
  Sex: Female
  Weight: 74.5 kg

DRUGS (8)
  1. DETRUSITOL [Suspect]
     Indication: INCONTINENCE
     Route: 048
  2. CO-DILATREND [Concomitant]
  3. SIMVASTATIN [Concomitant]
  4. BELOC [Concomitant]
  5. THROMBO ASS [Concomitant]
  6. OMEPRAZOLE [Concomitant]
  7. AMITRIPTYLINE HCL [Concomitant]
  8. CLIMARA [Concomitant]

REACTIONS (1)
  - BLOOD PRESSURE INCREASED [None]
